FAERS Safety Report 20983874 (Version 1)
Quarter: 2022Q2

REPORT INFORMATION
  Report Type: Spontaneous
  Country: US (occurrence: US)
  Receive Date: 20220621
  Receipt Date: 20220621
  Transmission Date: 20220721
  Serious: No
  Sender: FDA-Public Use
  Company Number: US-ORGANON-O2206USA001653

PATIENT
  Age: 40 Year
  Sex: Female

DRUGS (10)
  1. FOLLISTIM AQ [Suspect]
     Active Substance: FOLLITROPIN
     Indication: Infertility female
     Dosage: 600 UNT/0.72ML
     Route: 058
  2. GONADOTROPHIN, CHORIONIC [Suspect]
     Active Substance: GONADOTROPHIN, CHORIONIC
     Dosage: UNK
  3. FOLLISTIM AQ [Concomitant]
     Active Substance: FOLLITROPIN
  4. PREGNYL [Concomitant]
     Active Substance: CHORIOGONADOTROPIN ALFA
  5. ASPIRIN [Concomitant]
     Active Substance: ASPIRIN
  6. CHORIONIC GONADOTROPIN [Concomitant]
     Active Substance: CHORIOGONADOTROPIN ALFA
  7. DELESTROGEN [Concomitant]
     Active Substance: ESTRADIOL VALERATE
  8. LEUPROLIDE ACETATE [Concomitant]
     Active Substance: LEUPROLIDE ACETATE
  9. MINERALS\VITAMINS [Concomitant]
     Active Substance: MINERALS\VITAMINS
  10. PROGESTERONE [Concomitant]
     Active Substance: PROGESTERONE

REACTIONS (1)
  - Headache [Unknown]

NARRATIVE: CASE EVENT DATE: 20220610
